FAERS Safety Report 9844682 (Version 1)
Quarter: 2014Q1

REPORT INFORMATION
  Report Type: Spontaneous
  Country: CA (occurrence: None)
  Receive Date: 20140122
  Receipt Date: 20140122
  Transmission Date: 20141002
  Serious: Yes (Hospitalization)
  Sender: FDA-Public Use
  Company Number: VAL_02907_2014

PATIENT
  Age: 83 Year
  Sex: Female

DRUGS (19)
  1. METOPROLOL [Suspect]
     Indication: CORONARY ARTERY DISEASE
     Dosage: 50 MG DAY
  2. METOPROLOL [Suspect]
     Indication: CORONARY ARTERY BYPASS
     Dosage: 50 MG DAY
  3. AMLODIPINE (AMLODIPINE) [Suspect]
     Indication: HYPERTENSION
  4. RAMIPRIL (RAMIPRIL) [Suspect]
     Indication: HYPERTENSION
  5. GLYCERYL TRINITRATE [Suspect]
     Indication: ANGINA PECTORIS
     Route: 062
  6. ESCITALOPRAM (ESCITALOPRAM) [Suspect]
     Indication: DEPRESSION
  7. ESCITALOPRAM (ESCITALOPRAM) [Suspect]
     Indication: ANXIETY
  8. ZOPICLONE (ZOPICLONE) [Suspect]
     Indication: INSOMNIA
  9. FUROSEMIDE (FUROSEMIDE) [Suspect]
     Indication: PRODUCT USED FOR UNKNOWN INDICATION
  10. PRAXITEN PLIVA (OXAZEPAM) (OXAZEPAM) [Suspect]
     Indication: ANXIETY
  11. CODEINE PHOSPHATE (CODEINE PHOSPHATE) [Suspect]
     Indication: PAIN
  12. CLOPIDOGREL [Concomitant]
  13. ATORVASTATIN [Concomitant]
  14. VITAMIN D2 [Concomitant]
  15. ACETAMINOPHEN [Concomitant]
  16. POLYETHYLENE GLYCOL [Concomitant]
  17. VITAMIN-C [Concomitant]
  18. RABEPRAZOLE [Concomitant]
  19. PANTOPRAZOLE [Concomitant]

REACTIONS (14)
  - Fall [None]
  - Orthostatic hypotension [None]
  - Back pain [None]
  - Headache [None]
  - Musculoskeletal chest pain [None]
  - Arthralgia [None]
  - Sleep disorder [None]
  - Mobility decreased [None]
  - Neck pain [None]
  - Musculoskeletal pain [None]
  - Hypotension [None]
  - Nausea [None]
  - Oedema peripheral [None]
  - Serum ferritin decreased [None]
